FAERS Safety Report 5163182-2 (Version None)
Quarter: 2006Q4

REPORT INFORMATION
  Report Type: 
  Country: None (occurrence: None)
  Receive Date: 20061204
  Receipt Date: 20061124
  Transmission Date: 20070319
  Serious: Yes (Hospitalization, Other)
  Sender: FDA-Public Use
  Company Number: DE-JNJFOC-20061103589

PATIENT
  Age: 26 Year
  Sex: Female

DRUGS (15)
  1. RISPERDAL [Suspect]
     Route: 048
  2. RISPERDAL [Suspect]
     Route: 048
  3. RISPERDAL [Suspect]
     Route: 048
  4. RISPERDAL [Suspect]
     Route: 048
  5. RISPERDAL [Suspect]
     Route: 048
  6. RISPERDAL [Suspect]
     Route: 048
  7. RISPERDAL [Suspect]
     Route: 048
  8. RISPERDAL [Suspect]
     Route: 048
  9. RISPERDAL [Suspect]
     Indication: DRUG USE FOR UNKNOWN INDICATION
     Route: 048
  10. RISPERDAL CONSTA [Suspect]
     Route: 030
  11. RISPERDAL CONSTA [Suspect]
     Indication: DRUG USE FOR UNKNOWN INDICATION
     Route: 030
  12. TAVOR [Concomitant]
     Route: 048
  13. TAVOR [Concomitant]
     Route: 048
  14. TAVOR [Concomitant]
     Route: 048
  15. TAVOR [Concomitant]
     Route: 048

REACTIONS (2)
  - HOSPITALISATION [None]
  - THROMBOCYTOPENIA [None]
